FAERS Safety Report 15209884 (Version 1)
Quarter: 2018Q3

REPORT INFORMATION
  Report Type: Spontaneous
  Country: SE (occurrence: SE)
  Receive Date: 20180727
  Receipt Date: 20180727
  Transmission Date: 20181010
  Serious: Yes (Other)
  Sender: FDA-Public Use
  Company Number: PHHY2018SE056382

PATIENT
  Age: 61 Year
  Sex: Female
  Weight: 55 kg

DRUGS (1)
  1. TEGRETOL XR [Suspect]
     Active Substance: CARBAMAZEPINE
     Indication: EPILEPSY
     Dosage: 1200 MG, QD (400 MG, TID)
     Route: 065
     Dates: start: 19900101

REACTIONS (2)
  - Folate deficiency [Recovering/Resolving]
  - Osteoporosis [Recovering/Resolving]

NARRATIVE: CASE EVENT DATE: 20160315
